FAERS Safety Report 12007377 (Version 1)
Quarter: 2016Q1

REPORT INFORMATION
  Report Type: Spontaneous
  Country: DE (occurrence: DE)
  Receive Date: 20160205
  Receipt Date: 20160205
  Transmission Date: 20160526
  Serious: Yes (Hospitalization)
  Sender: FDA-Public Use
  Company Number: DE-HOSPIRA-3159515

PATIENT
  Age: 45 Year
  Sex: Male

DRUGS (4)
  1. ISOFLURANE. [Suspect]
     Active Substance: ISOFLURANE
     Indication: MAINTENANCE OF ANAESTHESIA
  2. ATRACURIUM [Suspect]
     Active Substance: ATRACURIUM
     Indication: MUSCLE RELAXANT THERAPY
  3. PROPOFOL. [Suspect]
     Active Substance: PROPOFOL
     Indication: INDUCTION OF ANAESTHESIA
  4. ALFENTANIL. [Suspect]
     Active Substance: ALFENTANIL
     Indication: INDUCTION OF ANAESTHESIA

REACTIONS (2)
  - Retinopathy haemorrhagic [Recovered/Resolved]
  - Oxygen saturation decreased [Recovered/Resolved]
